FAERS Safety Report 22374515 (Version 1)
Quarter: 2023Q2

REPORT INFORMATION
  Report Type: Spontaneous
  Country: BE (occurrence: BE)
  Receive Date: 20230526
  Receipt Date: 20230526
  Transmission Date: 20230721
  Serious: Yes (Other)
  Sender: FDA-Public Use
  Company Number: None

PATIENT
  Age: 42 Year
  Sex: Female

DRUGS (5)
  1. DIENOGEST\ESTRADIOL VALERATE [Suspect]
     Active Substance: DIENOGEST\ESTRADIOL VALERATE
     Dosage: DURING A FEW MONTHS
     Route: 048
  2. UTROGESTAN [Suspect]
     Active Substance: PROGESTERONE
     Dosage: 20 DAYS/MONTH
     Route: 048
  3. ESTRADIOL [Suspect]
     Active Substance: ESTRADIOL
     Route: 048
  4. DESOGESTREL\ETHINYL ESTRADIOL [Suspect]
     Active Substance: DESOGESTREL\ETHINYL ESTRADIOL
     Dosage: DURING A FEW MONTHS
     Route: 048
  5. ETHINYL ESTRADIOL\GESTODENE [Suspect]
     Active Substance: ETHINYL ESTRADIOL\GESTODENE

REACTIONS (1)
  - Meningioma [Unknown]

NARRATIVE: CASE EVENT DATE: 20221207
